FAERS Safety Report 16698091 (Version 1)
Quarter: 2019Q3

REPORT INFORMATION
  Report Type: Spontaneous
  Country: US (occurrence: US)
  Receive Date: 20190628
  Receipt Date: 20190628
  Transmission Date: 20191004
  Serious: No
  Sender: FDA-Public Use
  Company Number: None

PATIENT
  Age: 54 Year
  Sex: Female
  Weight: 83.91 kg

DRUGS (1)
  1. CHOLESTYRAMINE. [Suspect]
     Active Substance: CHOLESTYRAMINE
     Indication: DIARRHOEA
     Dosage: ?          OTHER DOSE:1 SCOOP;OTHER ROUTE:WITH 8OZ WATER BY MOUTH?
     Dates: start: 20100801

REACTIONS (2)
  - Product solubility abnormal [None]
  - Choking [None]
